FAERS Safety Report 7562466-8 (Version None)
Quarter: 2011Q2

REPORT INFORMATION
  Report Type: 
  Country: None (occurrence: None)
  Receive Date: 20110525
  Receipt Date: 20110404
  Transmission Date: 20111010
  Serious: No
  Sender: FDA-Public Use
  Company Number: 326139

PATIENT
  Age: 59 Year
  Sex: Female

DRUGS (5)
  1. SIMCOR [Concomitant]
  2. VICTOZA [Suspect]
     Indication: TYPE 2 DIABETES MELLITUS
     Dosage: 1.2 MG, QD, SUBCUTANEOUS ; 0.6 MG, QD, SUBCUTANEOUS
     Route: 058
  3. ZOLOFT [Concomitant]
  4. METFORMIN HCL [Concomitant]
  5. ESTRADIOL [Concomitant]

REACTIONS (2)
  - WEIGHT LOSS POOR [None]
  - CONSTIPATION [None]
